FAERS Safety Report 21964841 (Version 1)
Quarter: 2023Q1

REPORT INFORMATION
  Report Type: Spontaneous
  Country: US (occurrence: US)
  Receive Date: 20230207
  Receipt Date: 20230207
  Transmission Date: 20230418
  Serious: Yes (Other)
  Sender: FDA-Public Use
  Company Number: US-BRISTOL-MYERS SQUIBB COMPANY-2023-017971

PATIENT
  Age: 58 Year
  Sex: Female
  Weight: 131.54 kg

DRUGS (1)
  1. REVLIMID [Suspect]
     Active Substance: LENALIDOMIDE
     Indication: Plasma cell myeloma
     Dosage: DAILY X 14 DAYS ON AND 14 DAYS OFF
     Route: 048
     Dates: start: 20190627

REACTIONS (3)
  - Renal mass [Recovering/Resolving]
  - Pollakiuria [Not Recovered/Not Resolved]
  - Off label use [Unknown]
